FAERS Safety Report 13665663 (Version 2)
Quarter: 2017Q3

REPORT INFORMATION
  Report Type: Spontaneous
  Country: US (occurrence: US)
  Receive Date: 20170619
  Receipt Date: 20170818
  Transmission Date: 20171127
  Serious: No
  Sender: FDA-Public Use
  Company Number: US-ASTRAZENECA-2017SE63005

PATIENT
  Sex: Male
  Weight: 108.9 kg

DRUGS (1)
  1. SYMBICORT [Suspect]
     Active Substance: BUDESONIDE\FORMOTEROL FUMARATE DIHYDRATE
     Indication: ASTHMA
     Dosage: DOSE:160 MCG/4.5 MCG, FREQUENCY: DAILY
     Route: 055
     Dates: start: 201701

REACTIONS (4)
  - Device failure [Unknown]
  - Chest discomfort [Unknown]
  - Product storage error [Unknown]
  - Intentional product misuse [Unknown]
